FAERS Safety Report 14646754 (Version 1)
Quarter: 2018Q1

REPORT INFORMATION
  Report Type: Spontaneous
  Country: US (occurrence: US)
  Receive Date: 20180315
  Receipt Date: 20180315
  Transmission Date: 20180509
  Serious: No
  Sender: FDA-Public Use
  Company Number: None

PATIENT
  Age: 41 Year
  Sex: Female

DRUGS (1)
  1. VIVITROL [Suspect]
     Active Substance: NALTREXONE
     Indication: ALCOHOL ABUSE
     Dosage: Q28 DAYS
     Route: 058
     Dates: start: 20171212

REACTIONS (3)
  - Wrong technique in product usage process [None]
  - Weight increased [None]
  - Injection site mass [None]

NARRATIVE: CASE EVENT DATE: 20180314
